FAERS Safety Report 23825847 (Version 2)
Quarter: 2024Q2

REPORT INFORMATION
  Report Type: Spontaneous
  Country: US (occurrence: US)
  Receive Date: 20240507
  Receipt Date: 20240515
  Transmission Date: 20240716
  Serious: No
  Sender: FDA-Public Use
  Company Number: US-PFIZER INC-PV202400059105

PATIENT
  Age: 79 Year
  Sex: Female

DRUGS (2)
  1. NURTEC ODT [Suspect]
     Active Substance: RIMEGEPANT SULFATE
     Indication: Migraine
     Dosage: TAKE 1 ORAL TABLET EVERY OTHER DAY AS NEEDED FOR MIGRAINE/HEADACHES
     Route: 048
  2. NURTEC ODT [Suspect]
     Active Substance: RIMEGEPANT SULFATE
     Indication: Headache

REACTIONS (2)
  - Abdominal discomfort [Unknown]
  - Dry mouth [Unknown]
